FAERS Safety Report 9502050 (Version 1)
Quarter: 2013Q3

REPORT INFORMATION
  Report Type: Report from Study
  Country: US (occurrence: US)
  Receive Date: 20130905
  Receipt Date: 20130905
  Transmission Date: 20140515
  Serious: Yes (Other)
  Sender: FDA-Public Use
  Company Number: US-US-EMD SERONO, INC.-7234801

PATIENT
  Sex: Male

DRUGS (1)
  1. REBIF [Suspect]
     Indication: MULTIPLE SCLEROSIS
     Route: 058
     Dates: start: 20060403

REACTIONS (6)
  - Oesophageal ulcer [Unknown]
  - Hypertension [Unknown]
  - Glucose tolerance impaired [Not Recovered/Not Resolved]
  - Stress [Unknown]
  - Injection site discolouration [Recovered/Resolved]
  - Injection site rash [Recovered/Resolved]
